FAERS Safety Report 21954550 (Version 2)
Quarter: 2023Q2

REPORT INFORMATION
  Report Type: Spontaneous
  Country: AU (occurrence: AU)
  Receive Date: 20230205
  Receipt Date: 20230403
  Transmission Date: 20230722
  Serious: Yes (Disabling)
  Sender: FDA-Public Use
  Company Number: AU-CIPLA LTD.-2023AU00598

PATIENT

DRUGS (16)
  1. PREGABALIN [Suspect]
     Active Substance: PREGABALIN
     Indication: Meralgia paraesthetica
     Dosage: 75 MG, UNK
     Route: 065
     Dates: start: 202107
  2. ONDANSETRON [Suspect]
     Active Substance: ONDANSETRON
     Indication: Migraine
     Dosage: 8 MG, UNK
     Route: 065
     Dates: start: 2019
  3. ONDANSETRON [Suspect]
     Active Substance: ONDANSETRON
     Indication: Product used for unknown indication
     Dosage: UNK
     Route: 065
  4. EMGALITY [Suspect]
     Active Substance: GALCANEZUMAB-GNLM
     Indication: Migraine
     Dosage: UNK, EVERY 1 MONTH
     Route: 065
     Dates: start: 202107
  5. ESTRADIOL [Suspect]
     Active Substance: ESTRADIOL
     Indication: Menopause
     Dosage: 100 MCG, UNK
     Route: 065
     Dates: start: 20191010
  6. SIMETHICONE (DIMETHICONE) [Suspect]
     Active Substance: DIMETHICONE
     Indication: Irritable bowel syndrome
     Dosage: UNK
     Route: 065
  7. CITALOPRAM HYDROBROMIDE [Suspect]
     Active Substance: CITALOPRAM HYDROBROMIDE
     Indication: Depression
     Dosage: 40 MILLIGRAM, QD
     Route: 048
     Dates: start: 201811
  8. BUTYLSCOPOLAMINE BROMIDE [Suspect]
     Active Substance: BUTYLSCOPOLAMINE BROMIDE
     Indication: Irritable bowel syndrome
     Dosage: UNK
     Route: 065
  9. AMITRIPTYLINE [Suspect]
     Active Substance: AMITRIPTYLINE
     Indication: Migraine
     Dosage: UNK
     Route: 065
  10. AMITRIPTYLINE [Suspect]
     Active Substance: AMITRIPTYLINE
     Dosage: 25 MILLIGRAM, QD
     Route: 065
     Dates: start: 20220120
  11. PROMETRIUM [Suspect]
     Active Substance: PROGESTERONE
     Indication: Menopause
     Dosage: UNK
     Route: 067
     Dates: start: 20191028
  12. QUETIAPINE [Suspect]
     Active Substance: QUETIAPINE
     Indication: Anxiety
     Dosage: 25 MG, 3 TIMES NIGHTLY
     Route: 065
     Dates: start: 201811
  13. RABEPRAZOLE SODIUM [Suspect]
     Active Substance: RABEPRAZOLE SODIUM
     Indication: Gastrooesophageal reflux disease
     Dosage: UNK
     Route: 065
  14. TAPENTADOL [Suspect]
     Active Substance: TAPENTADOL
     Indication: Migraine
     Dosage: 50 MG, UNK
     Route: 065
     Dates: start: 2018
  15. TAPENTADOL [Suspect]
     Active Substance: TAPENTADOL
     Dosage: UNK
     Route: 065
  16. ZOLMITRIPTAN [Suspect]
     Active Substance: ZOLMITRIPTAN
     Indication: Migraine
     Dosage: 2.5 MG, UNK
     Route: 065
     Dates: start: 2019

REACTIONS (5)
  - Breast tenderness [Unknown]
  - Hot flush [Unknown]
  - Hyperhidrosis [Unknown]
  - Migraine [Unknown]
  - Product formulation issue [Unknown]

NARRATIVE: CASE EVENT DATE: 20220101
